FAERS Safety Report 24119651 (Version 2)
Quarter: 2024Q3

REPORT INFORMATION
  Report Type: Spontaneous
  Country: NL (occurrence: NL)
  Receive Date: 20240722
  Receipt Date: 20240830
  Transmission Date: 20241017
  Serious: Yes (Death, Hospitalization, Other)
  Sender: MERCK
  Company Number: NL-009507513-2407NLD011329

PATIENT
  Age: 82 Year
  Sex: Female

DRUGS (1)
  1. KEYTRUDA [Suspect]
     Active Substance: PEMBROLIZUMAB
     Indication: Colorectal cancer
     Dosage: 100 MILLIGRAM, Q3W
     Route: 042
     Dates: start: 20240530, end: 20240620

REACTIONS (7)
  - Death [Fatal]
  - Orbital myositis [Unknown]
  - Myalgia [Unknown]
  - Immune-mediated myasthenia gravis [Unknown]
  - Myasthenic syndrome [Unknown]
  - Immune-mediated myositis [Unknown]
  - Incorrect dose administered [Unknown]

NARRATIVE: CASE EVENT DATE: 20240530
